FAERS Safety Report 6007777-2 (Version None)
Quarter: 2008Q4

REPORT INFORMATION
  Report Type: 
  Country: None (occurrence: None)
  Receive Date: 20081217
  Receipt Date: 20080604
  Transmission Date: 20090506
  Serious: No
  Sender: FDA-Public Use
  Company Number: US-ASTRAZENECA-2008UW11301

PATIENT
  Age: 59 Year
  Sex: Male
  Weight: 94.3 kg

DRUGS (6)
  1. CRESTOR [Suspect]
     Route: 048
  2. SYNTHROID [Concomitant]
  3. PROZAC [Concomitant]
  4. REQUIP [Concomitant]
  5. ASPIRIN [Concomitant]
  6. M.V.I. [Concomitant]

REACTIONS (1)
  - MUSCLE SPASMS [None]
